FAERS Safety Report 7305672-X (Version None)
Quarter: 2011Q1

REPORT INFORMATION
  Report Type: 
  Country: None (occurrence: None)
  Receive Date: 20110222
  Receipt Date: 20110214
  Transmission Date: 20110831
  Serious: Yes (Hospitalization)
  Sender: FDA-Public Use
  Company Number: A0890918A

PATIENT
  Age: 58 Year
  Sex: Male

DRUGS (1)
  1. AVANDIA [Suspect]
     Dosage: 4MG PER DAY
     Route: 048
     Dates: start: 20000401, end: 20071201

REACTIONS (7)
  - ARTERIOSCLEROSIS CORONARY ARTERY [None]
  - CARDIOVASCULAR DISORDER [None]
  - MYOCARDIAL INFARCTION [None]
  - CARDIO-RESPIRATORY DISTRESS [None]
  - RENAL DISORDER [None]
  - CARDIAC FAILURE CONGESTIVE [None]
  - CEREBROVASCULAR ACCIDENT [None]
